FAERS Safety Report 11330151 (Version 3)
Quarter: 2015Q4

REPORT INFORMATION
  Report Type: Spontaneous
  Country: US (occurrence: US)
  Receive Date: 20150803
  Receipt Date: 20151126
  Transmission Date: 20160304
  Serious: No
  Sender: FDA-Public Use
  Company Number: US-BIOGENIDEC-2015BI106794

PATIENT
  Age: 54 Year
  Sex: Female

DRUGS (2)
  1. INSULIN SHOTS [Concomitant]
     Indication: DIABETES MELLITUS
  2. AVONEX [Suspect]
     Active Substance: INTERFERON BETA-1A
     Indication: MULTIPLE SCLEROSIS
     Route: 030
     Dates: start: 20150724

REACTIONS (52)
  - Dry mouth [Unknown]
  - Hypoaesthesia oral [Unknown]
  - Muscle atrophy [Unknown]
  - Gastrointestinal disorder [Unknown]
  - Injection site pain [Recovered/Resolved]
  - Fatigue [Unknown]
  - Headache [Recovered/Resolved]
  - Malaise [Recovered/Resolved]
  - Weight decreased [Unknown]
  - Fear [Unknown]
  - Injection site haemorrhage [Recovered/Resolved]
  - Haemorrhagic disorder [Not Recovered/Not Resolved]
  - Injection site bruising [Unknown]
  - Multiple sclerosis [Unknown]
  - Vascular pain [Unknown]
  - Fear of injection [Unknown]
  - Diabetes mellitus [Not Recovered/Not Resolved]
  - Muscle spasms [Not Recovered/Not Resolved]
  - Liver function test abnormal [Unknown]
  - Dyspnoea [Unknown]
  - Abdominal pain [Recovered/Resolved]
  - Upper extremity mass [Not Recovered/Not Resolved]
  - Peripheral swelling [Not Recovered/Not Resolved]
  - Hepatic steatosis [Unknown]
  - Cognitive disorder [Unknown]
  - Pain in extremity [Not Recovered/Not Resolved]
  - Neck pain [Recovered/Resolved]
  - Anxiety [Unknown]
  - Multiple sclerosis relapse [Unknown]
  - Contusion [Not Recovered/Not Resolved]
  - General symptom [Unknown]
  - Memory impairment [Not Recovered/Not Resolved]
  - Hypoaesthesia [Unknown]
  - Tremor [Recovered/Resolved]
  - Nervousness [Not Recovered/Not Resolved]
  - Oropharyngeal pain [Not Recovered/Not Resolved]
  - Hyperaesthesia [Unknown]
  - Dry eye [Unknown]
  - Stress [Unknown]
  - Dizziness [Recovered/Resolved]
  - Depressed mood [Unknown]
  - Feeling cold [Not Recovered/Not Resolved]
  - Visual acuity reduced [Unknown]
  - Body temperature decreased [Unknown]
  - Pyrexia [Not Recovered/Not Resolved]
  - Gastric disorder [Not Recovered/Not Resolved]
  - Ear pain [Not Recovered/Not Resolved]
  - Mobility decreased [Unknown]
  - Influenza like illness [Recovered/Resolved]
  - Feeling abnormal [Recovered/Resolved]
  - Pain [Not Recovered/Not Resolved]
  - Frustration [Not Recovered/Not Resolved]

NARRATIVE: CASE EVENT DATE: 2015
